FAERS Safety Report 7248652-5 (Version None)
Quarter: 2011Q1

REPORT INFORMATION
  Report Type: 
  Country: None (occurrence: None)
  Receive Date: 20110128
  Receipt Date: 20110118
  Transmission Date: 20110831
  Serious: Yes (Hospitalization)
  Sender: FDA-Public Use
  Company Number: US-BIOGENIDEC-2010BI014864

PATIENT
  Age: 32 Year
  Sex: Male
  Weight: 68 kg

DRUGS (1)
  1. TYSABRI [Suspect]
     Indication: MULTIPLE SCLEROSIS
     Route: 042
     Dates: start: 20061213

REACTIONS (12)
  - RALES [None]
  - PARALYSIS [None]
  - GASTROINTESTINAL TUBE INSERTION [None]
  - GASTROINTESTINAL DISORDER [None]
  - MOTOR DYSFUNCTION [None]
  - PNEUMONIA [None]
  - NEPHROLITHIASIS [None]
  - MUSCULOSKELETAL STIFFNESS [None]
  - CATHETER SITE HAEMORRHAGE [None]
  - COUGH [None]
  - INFECTION [None]
  - OPEN WOUND [None]
